FAERS Safety Report 9659580 (Version 1)
Quarter: 2013Q4

REPORT INFORMATION
  Report Type: Spontaneous
  Country: US (occurrence: US)
  Receive Date: 20131031
  Receipt Date: 20131031
  Transmission Date: 20140711
  Serious: Yes (Other)
  Sender: FDA-Public Use
  Company Number: US-PFIZER INC-2013309938

PATIENT
  Age: 11 Year
  Sex: Female
  Weight: 48.54 kg

DRUGS (1)
  1. CHILDREN^S MOTRIN [Suspect]
     Indication: PYREXIA
     Dosage: 20 ML, UNK
     Route: 048
     Dates: start: 20131017

REACTIONS (1)
  - Blood glucose increased [Recovering/Resolving]
